FAERS Safety Report 6212565-8 (Version None)
Quarter: 2009Q2

REPORT INFORMATION
  Report Type: 
  Country: None (occurrence: None)
  Receive Date: 20090603
  Receipt Date: 20090522
  Transmission Date: 20091009
  Serious: Yes (Other)
  Sender: FDA-Public Use
  Company Number: PHHY2009JP15644

PATIENT
  Sex: Male
  Weight: 71 kg

DRUGS (6)
  1. DIOVAN [Suspect]
     Indication: HYPERTENSION
     Dosage: 80 MG/DAY
     Route: 048
     Dates: start: 20060529, end: 20090410
  2. ADALAT CC [Concomitant]
     Dosage: UNK
     Route: 048
     Dates: start: 20070101
  3. FLUITRAN [Concomitant]
     Dosage: UNK
     Route: 048
     Dates: start: 20070101
  4. NIFEDIPINE [Concomitant]
     Dosage: 20 MG/DAY
     Route: 048
     Dates: start: 20060529
  5. TRICHLORMETHIAZIDE [Concomitant]
     Dosage: 2 MG/DAY
     Route: 048
     Dates: start: 20071114
  6. STONA RHINI [Concomitant]
     Indication: RHINITIS
     Dosage: UNK
     Dates: start: 20090201

REACTIONS (5)
  - ALANINE AMINOTRANSFERASE INCREASED [None]
  - ASPARTATE AMINOTRANSFERASE INCREASED [None]
  - BLOOD CREATINE PHOSPHOKINASE INCREASED [None]
  - MUSCLE SPASMS [None]
  - MYOGLOBIN BLOOD INCREASED [None]
